FAERS Safety Report 6103036-8 (Version None)
Quarter: 2009Q1

REPORT INFORMATION
  Report Type: 
  Country: None (occurrence: None)
  Receive Date: 20090305
  Receipt Date: 20090304
  Transmission Date: 20090719
  Serious: Yes (Disabling)
  Sender: FDA-Public Use
  Company Number: PHHO2005SE13204

PATIENT
  Sex: Female
  Weight: 66 kg

DRUGS (5)
  1. LOTREL [Suspect]
     Indication: HYPERTENSION
     Dosage: LEVEL 1
     Route: 048
     Dates: start: 20050509, end: 20050608
  2. LOTREL [Suspect]
     Dosage: LEVEL 2
     Route: 048
     Dates: start: 20050609, end: 20050629
  3. LOTREL [Suspect]
     Dosage: LEVEL 3
     Route: 048
     Dates: start: 20050630, end: 20050715
  4. SELOKEN ZOC [Concomitant]
     Indication: ANGINA PECTORIS
     Dosage: 100 MG X 1, BID
  5. INSULIN [Concomitant]

REACTIONS (3)
  - CARDIAC FAILURE CONGESTIVE [None]
  - DYSPNOEA [None]
  - OEDEMA PERIPHERAL [None]
